FAERS Safety Report 11131057 (Version 1)
Quarter: 2015Q2

REPORT INFORMATION
  Report Type: Spontaneous
  Country: US (occurrence: None)
  Receive Date: 20150521
  Receipt Date: 20150521
  Transmission Date: 20150821
  Serious: No
  Sender: FDA-Public Use
  Company Number: None

PATIENT
  Sex: Female
  Weight: 64.41 kg

DRUGS (1)
  1. LIDOCAINE PATCH [Suspect]
     Active Substance: LIDOCAINE
     Indication: ARTHRALGIA
     Route: 061
     Dates: start: 20150505

REACTIONS (3)
  - Device dislocation [None]
  - Device breakage [None]
  - Application site burn [None]

NARRATIVE: CASE EVENT DATE: 20150505
